FAERS Safety Report 23888050 (Version 1)
Quarter: 2024Q2

REPORT INFORMATION
  Report Type: Spontaneous
  Country: CN (occurrence: CN)
  Receive Date: 20240523
  Receipt Date: 20240523
  Transmission Date: 20240715
  Serious: Yes (Other)
  Sender: FDA-Public Use
  Company Number: CN-ASTELLAS-2024US014200

PATIENT
  Age: 57 Year
  Sex: Male
  Weight: 75 kg

DRUGS (1)
  1. HARNAL [Suspect]
     Active Substance: TAMSULOSIN HYDROCHLORIDE
     Indication: Benign prostatic hyperplasia
     Dosage: 0.2 MG, QD
     Route: 048
     Dates: start: 20240505, end: 20240512

REACTIONS (3)
  - Drug reaction with eosinophilia and systemic symptoms [Recovered/Resolved]
  - Syncope [Recovered/Resolved]
  - Neuropsychological symptoms [Recovered/Resolved]

NARRATIVE: CASE EVENT DATE: 20240512
